FAERS Safety Report 7950441-0 (Version None)
Quarter: 2011Q4

REPORT INFORMATION
  Report Type: 
  Country: None (occurrence: None)
  Receive Date: 20111130
  Receipt Date: 20111128
  Transmission Date: 20120403
  Serious: No
  Sender: FDA-Public Use
  Company Number: US-BAYER-2011-114517

PATIENT
  Sex: Male

DRUGS (2)
  1. MAGNEVIST [Suspect]
     Indication: NUCLEAR MAGNETIC RESONANCE IMAGING
     Dosage: 18 ML, ONCE
  2. MAGNEVIST [Suspect]
     Indication: ANGIOGRAM

REACTIONS (5)
  - THROAT TIGHTNESS [None]
  - FEELING HOT [None]
  - PRURITUS [None]
  - DYSPHONIA [None]
  - URTICARIA [None]
